FAERS Safety Report 11358837 (Version 1)
Quarter: 2015Q3

REPORT INFORMATION
  Report Type: Spontaneous
  Country: US (occurrence: None)
  Receive Date: 20150807
  Receipt Date: 20150807
  Transmission Date: 20151125
  Serious: Yes (Hospitalization, Disabling, Other)
  Sender: FDA-Public Use
  Company Number: None

PATIENT
  Age: 34 Year
  Sex: Female
  Weight: 68.04 kg

DRUGS (7)
  1. CALCIUM [Concomitant]
     Active Substance: CALCIUM
  2. MAGNESIUM [Concomitant]
     Active Substance: MAGNESIUM
  3. NALTREXONE [Suspect]
     Active Substance: NALTREXONE
     Indication: ALCOHOL DETOXIFICATION
     Dosage: ONCE MONTHLY  INTO THE MUSCLE
     Dates: start: 20150617
  4. ATIVAN [Concomitant]
     Active Substance: LORAZEPAM
  5. ZOLPIDEM [Concomitant]
     Active Substance: ZOLPIDEM\ZOLPIDEM TARTRATE
  6. ZINC [Concomitant]
     Active Substance: ZINC\ZINC CHLORIDE
  7. VITAMIN C [Concomitant]
     Active Substance: ASCORBIC ACID

REACTIONS (2)
  - Stevens-Johnson syndrome [None]
  - Injection site haematoma [None]

NARRATIVE: CASE EVENT DATE: 20150609
